FAERS Safety Report 21015770 (Version 1)
Quarter: 2022Q2

REPORT INFORMATION
  Report Type: Spontaneous
  Country: US (occurrence: US)
  Receive Date: 20220628
  Receipt Date: 20220628
  Transmission Date: 20220721
  Serious: Yes (Hospitalization)
  Sender: FDA-Public Use
  Company Number: US-LUPIN PHARMACEUTICALS INC.-2022-09008

PATIENT
  Age: 79 Year
  Sex: Male

DRUGS (3)
  1. LEVETIRACETAM [Suspect]
     Active Substance: LEVETIRACETAM
     Indication: Focal dyscognitive seizures
     Dosage: UNK
     Route: 065
  2. DEXAMETHASONE [Suspect]
     Active Substance: DEXAMETHASONE
     Indication: Focal dyscognitive seizures
     Dosage: UNK
     Route: 065
  3. TRAZODONE [Suspect]
     Active Substance: TRAZODONE HYDROCHLORIDE
     Indication: Focal dyscognitive seizures
     Dosage: UNK
     Route: 065

REACTIONS (1)
  - Therapy non-responder [Unknown]
